FAERS Safety Report 8041452-8 (Version None)
Quarter: 2012Q1

REPORT INFORMATION
  Report Type: 
  Country: None (occurrence: None)
  Receive Date: 20120112
  Receipt Date: 20120109
  Transmission Date: 20120608
  Serious: Yes (Hospitalization, Other)
  Sender: FDA-Public Use
  Company Number: US-PFIZER INC-2010006457

PATIENT
  Sex: Female

DRUGS (1)
  1. CHANTIX [Suspect]
     Indication: SMOKING CESSATION THERAPY
     Dosage: UNK
     Dates: start: 20080216, end: 20080427

REACTIONS (7)
  - INTENTIONAL OVERDOSE [None]
  - SLEEP APNOEA SYNDROME [None]
  - DEPRESSION [None]
  - SUICIDE ATTEMPT [None]
  - NIGHTMARE [None]
  - PAIN [None]
  - OVERWEIGHT [None]
